FAERS Safety Report 8468330 (Version 3)
Quarter: 2021Q3

REPORT INFORMATION
  Report Type: Spontaneous
  Country: US (occurrence: US)
  Receive Date: 20120320
  Receipt Date: 20210830
  Transmission Date: 20211014
  Serious: No
  Sender: FDA-Public Use
  Company Number: US-PFIZER INC-2012068401

PATIENT
  Age: 63 Year
  Sex: Female
  Weight: 83.9 kg

DRUGS (4)
  1. ATENOLOL. [Concomitant]
     Active Substance: ATENOLOL
     Indication: HYPERTENSION
     Dosage: 25 MG, DAILY
  2. CELEBREX [Suspect]
     Active Substance: CELECOXIB
     Indication: OSTEOARTHRITIS
     Dosage: 200 MG, DAILY
     Route: 048
  3. CELEBREX [Suspect]
     Active Substance: CELECOXIB
     Dosage: 200 MG, WEEKLY
     Route: 048
     Dates: start: 201112
  4. EFFEXOR [Concomitant]
     Active Substance: VENLAFAXINE HYDROCHLORIDE
     Indication: DEPRESSION
     Dosage: 150 MG, DAILY

REACTIONS (2)
  - Product administration error [Unknown]
  - Arthralgia [Unknown]

NARRATIVE: CASE EVENT DATE: 201112
